FAERS Safety Report 6927910-5 (Version None)
Quarter: 2010Q3

REPORT INFORMATION
  Report Type: 
  Country: None (occurrence: None)
  Receive Date: 20100817
  Receipt Date: 20100810
  Transmission Date: 20110219
  Serious: Yes (Hospitalization)
  Sender: FDA-Public Use
  Company Number: US-WYE-H15627710

PATIENT
  Sex: Male
  Weight: 120.6 kg

DRUGS (13)
  1. TYGACIL [Suspect]
     Indication: WOUND
     Dosage: 55 MG (OUT OF 100MG BAG)
     Route: 042
     Dates: start: 20100608, end: 20100608
  2. ASCORBIC ACID [Concomitant]
     Dates: start: 20100607, end: 20100611
  3. BACLOFEN [Concomitant]
     Dates: start: 20100607, end: 20100611
  4. DIAZEPAM [Concomitant]
     Dosage: 5MG/10MG ONCE DAILY
     Dates: start: 20100607, end: 20100611
  5. BENADRYL [Concomitant]
     Route: 048
     Dates: start: 20100606
  6. TEMAZEPAM [Concomitant]
     Dosage: 30 MG Q HS PRN
  7. FUROSEMIDE [Concomitant]
  8. ACETAMINOPHEN AND HYDROCODONE BITARTRATE [Concomitant]
     Dosage: 5/325 MG QID
  9. NITROGLYCERIN [Concomitant]
     Dosage: 0.4 MG PRN
     Route: 060
  10. ONDANSETRON [Concomitant]
     Dosage: 4 MG BID PRN
  11. HYDROMORPHONE [Concomitant]
     Dosage: 2 MG Q4 HR PRN
  12. ERTAPENEM [Concomitant]
     Dosage: UNKNOWN
  13. DOCUSATE SODIUM [Concomitant]
     Dosage: 240 MG EVERY 24 HR.

REACTIONS (3)
  - CHEST PAIN [None]
  - HYPERHIDROSIS [None]
  - NAUSEA [None]
